FAERS Safety Report 19104449 (Version 2)
Quarter: 2021Q2

REPORT INFORMATION
  Report Type: Spontaneous
  Country: CZ (occurrence: CZ)
  Receive Date: 20210408
  Receipt Date: 20210428
  Transmission Date: 20210717
  Serious: Yes (Hospitalization)
  Sender: FDA-Public Use
  Company Number: CZ-SAMSUNG BIOEPIS-SB-2021-08645

PATIENT
  Age: 8 Year
  Sex: Male

DRUGS (6)
  1. INFLIXIMAB [Suspect]
     Active Substance: INFLIXIMAB
     Indication: COELIAC DISEASE
     Route: 065
  2. AZATHIOPRINE. [Suspect]
     Active Substance: AZATHIOPRINE
     Indication: COELIAC DISEASE
  3. INFLIXIMAB [Suspect]
     Active Substance: INFLIXIMAB
     Indication: COLITIS ULCERATIVE
     Route: 065
  4. ADALIMUMAB [Suspect]
     Active Substance: ADALIMUMAB
     Indication: COLITIS ULCERATIVE
     Dosage: UNKNOWN
     Route: 065
  5. AZATHIOPRINE. [Suspect]
     Active Substance: AZATHIOPRINE
     Indication: COLITIS ULCERATIVE
     Route: 065
  6. ADALIMUMAB [Suspect]
     Active Substance: ADALIMUMAB
     Indication: COELIAC DISEASE

REACTIONS (5)
  - Off label use [Unknown]
  - Posterior reversible encephalopathy syndrome [Recovered/Resolved]
  - Therapeutic response shortened [Unknown]
  - Colitis ulcerative [Recovering/Resolving]
  - Hypertension [Unknown]
